APPROVED DRUG PRODUCT: OLOPATADINE HYDROCHLORIDE
Active Ingredient: OLOPATADINE HYDROCHLORIDE
Strength: 0.665MG/SPRAY
Dosage Form/Route: SPRAY, METERED;NASAL
Application: A213757 | Product #001
Applicant: HIKMA PHARMACEUTICALS USA INC
Approved: Aug 19, 2020 | RLD: No | RS: No | Type: DISCN